FAERS Safety Report 4405032-5 (Version None)
Quarter: 2004Q3

REPORT INFORMATION
  Report Type: 
  Country: None (occurrence: None)
  Receive Date: 20040715
  Receipt Date: 20040629
  Transmission Date: 20050211
  Serious: Yes (Other)
  Sender: FDA-Public Use
  Company Number: 2001-BP-02509

PATIENT
  Age: 5 Month
  Sex: Female
  Weight: 5.63 kg

DRUGS (6)
  1. NEVIRAPINE [Suspect]
     Indication: PROPHYLAXIS AGAINST HIV INFECTION
     Dosage: SEE IMAGE
     Route: 048
     Dates: end: 20010911
  2. NEVIRAPINE [Suspect]
     Indication: PROPHYLAXIS AGAINST HIV INFECTION
     Dosage: SEE IMAGE
     Route: 048
     Dates: start: 20010328
  3. NELFINAVIR [Concomitant]
  4. D4T (STAVUDINE) [Concomitant]
  5. 3TC (LAMIVUDINE) [Concomitant]
  6. BACTRIM [Concomitant]

REACTIONS (4)
  - BLOOD AMYLASE INCREASED [None]
  - HYPERCALCAEMIA [None]
  - LABORATORY TEST INTERFERENCE [None]
  - NEUTROPENIA [None]
